FAERS Safety Report 13346188 (Version 1)
Quarter: 2017Q1

REPORT INFORMATION
  Report Type: Spontaneous
  Country: US (occurrence: US)
  Receive Date: 20170317
  Receipt Date: 20170317
  Transmission Date: 20170428
  Serious: No
  Sender: FDA-Public Use
  Company Number: US-GLAXOSMITHKLINE-US2017034689

PATIENT
  Age: 98 Year
  Sex: Female

DRUGS (1)
  1. VOLTAREN [Suspect]
     Active Substance: DICLOFENAC SODIUM
     Indication: ARTHRITIS
     Dosage: UNK (APPLYING 2 AND 4 GRAMS ON BOTH THE LEFT AND RIGHT SIDES )

REACTIONS (2)
  - Drug administered at inappropriate site [Unknown]
  - Extra dose administered [Unknown]
